FAERS Safety Report 4924031-8 (Version None)
Quarter: 2006Q1

REPORT INFORMATION
  Report Type: 
  Country: None (occurrence: None)
  Receive Date: 20060221
  Receipt Date: 20060209
  Transmission Date: 20060701
  Serious: Yes (Other)
  Sender: FDA-Public Use
  Company Number: 2006020476

PATIENT
  Age: 7 Month
  Sex: Male
  Weight: 9.5255 kg

DRUGS (2)
  1. BENADRYL [Suspect]
     Indication: PHARYNGITIS
     Dosage: A LITTLE BIT MORE THAN 2ML 3X DAILY; ORAL
     Route: 048
     Dates: start: 20060207
  2. BACTRIM [Concomitant]

REACTIONS (2)
  - ERYTHEMA [None]
  - EYE SWELLING [None]
